FAERS Safety Report 21354368 (Version 3)
Quarter: 2022Q4

REPORT INFORMATION
  Report Type: Spontaneous
  Country: AU (occurrence: AU)
  Receive Date: 20220920
  Receipt Date: 20221031
  Transmission Date: 20230112
  Serious: Yes (Hospitalization, Other)
  Sender: FDA-Public Use
  Company Number: AU-NOVARTISPH-NVSC2022AU210516

PATIENT
  Age: 0 Year
  Sex: Female
  Weight: 6.5 kg

DRUGS (3)
  1. OMEPRAZOLE [Suspect]
     Active Substance: OMEPRAZOLE
     Indication: Selective eating disorder
     Dosage: 5 MG, QD, LIQUID, NG
     Route: 045
     Dates: start: 20220401
  2. PROPRANOLOL [Concomitant]
     Active Substance: PROPRANOLOL HYDROCHLORIDE
     Indication: Supraventricular tachyarrhythmia
     Dosage: 7.5 MG, TID, LIQUID, NG
     Route: 045
     Dates: start: 20220504
  3. TRAMETINIB [Concomitant]
     Active Substance: TRAMETINIB
     Indication: Product used for unknown indication
     Dosage: 80 MCG (12.5 MCG/ KG/ DOSE), INCREASED TO 160 MCG (25 MCG/KG/DOSE), QD
     Route: 065

REACTIONS (9)
  - Malaise [Recovered/Resolved]
  - Mitral valve incompetence [Not Recovered/Not Resolved]
  - Tricuspid valve incompetence [Not Recovered/Not Resolved]
  - Hypertrophy [Not Recovered/Not Resolved]
  - Arrhythmia supraventricular [Recovering/Resolving]
  - Haemodynamic instability [Recovered/Resolved]
  - Selective eating disorder [Not Recovered/Not Resolved]
  - Haemodynamic instability [Recovered/Resolved]
  - Product use issue [Unknown]

NARRATIVE: CASE EVENT DATE: 20220504
